FAERS Safety Report 5721001-7 (Version None)
Quarter: 2008Q2

REPORT INFORMATION
  Report Type: 
  Country: None (occurrence: None)
  Receive Date: 20080429
  Receipt Date: 20080414
  Transmission Date: 20081010
  Serious: Yes (Hospitalization)
  Sender: FDA-Public Use
  Company Number: FR-ASTRAZENECA-2008SE02157

PATIENT
  Age: 27935 Day
  Sex: Female

DRUGS (3)
  1. KENZEN 16 MG [Suspect]
     Indication: HYPERTENSION
     Route: 048
     Dates: start: 19980101
  2. SUTENT [Suspect]
     Indication: RENAL CELL CARCINOMA
     Route: 048
     Dates: start: 20080202, end: 20080306
  3. PRAVASTATIN [Suspect]
     Indication: DRUG USE FOR UNKNOWN INDICATION
     Route: 048

REACTIONS (2)
  - NEPHROTIC SYNDROME [None]
  - PANCYTOPENIA [None]
